FAERS Safety Report 4900094-0 (Version None)
Quarter: 2006Q1

REPORT INFORMATION
  Report Type: 
  Country: None (occurrence: None)
  Receive Date: 20060203
  Receipt Date: 20060130
  Transmission Date: 20060701
  Serious: Yes (Hospitalization)
  Sender: FDA-Public Use
  Company Number: PHRM2006FR00662

PATIENT
  Age: 66 Year
  Sex: Female

DRUGS (5)
  1. NISISCO [Suspect]
     Indication: HYPERTENSION
     Dosage: 2 DF, QD
     Route: 048
     Dates: start: 20051101, end: 20060105
  2. TERALITHE [Suspect]
     Indication: BIPOLAR I DISORDER
     Dosage: 4 DF/DAY
     Route: 048
     Dates: end: 20060104
  3. LERCAN [Concomitant]
     Indication: HYPERTENSION
     Dosage: 1 DF, QD
     Route: 048
     Dates: end: 20060105
  4. NOVONORM [Concomitant]
     Indication: DIABETES MELLITUS
     Dosage: 3 DF/DAY
     Route: 048
  5. LEXOMIL [Concomitant]
     Dosage: UNK, UNK
     Route: 048

REACTIONS (8)
  - ANOREXIA [None]
  - ANTIPSYCHOTIC DRUG LEVEL INCREASED [None]
  - ASTHENIA [None]
  - BLOOD CREATININE INCREASED [None]
  - DRUG INTERACTION [None]
  - RENAL FAILURE ACUTE [None]
  - TREMOR [None]
  - WEIGHT DECREASED [None]
